FAERS Safety Report 8935317 (Version 1)
Quarter: 2012Q4

REPORT INFORMATION
  Report Type: 
  Country: US (occurrence: US)
  Receive Date: 20121129
  Receipt Date: 20121129
  Transmission Date: 20130627
  Serious: Yes (Other)
  Sender: FDA-Public Use
  Company Number: US-PFIZER INC-2012299570

PATIENT
  Age: 60 Year
  Sex: Female
  Weight: 65.76 kg

DRUGS (3)
  1. LYRICA [Suspect]
     Indication: FIBROMYALGIA
     Dosage: 75 mg, UNK
     Route: 048
     Dates: start: 2010
  2. LYRICA [Suspect]
     Dosage: 150 mg, 2x/day
     Route: 048
  3. MOBIC [Concomitant]
     Indication: ARTHRITIS

REACTIONS (12)
  - Weight increased [Unknown]
  - Chest pain [Unknown]
  - Wheezing [Unknown]
  - Vision blurred [Unknown]
  - Blood creatinine increased [Unknown]
  - Blood urea increased [Unknown]
  - Oedema peripheral [Unknown]
  - Oedema peripheral [Unknown]
  - General physical health deterioration [Unknown]
  - Migraine [Unknown]
  - Balance disorder [Unknown]
  - Dizziness [Unknown]
